FAERS Safety Report 11684540 (Version 1)
Quarter: 2015Q4

REPORT INFORMATION
  Report Type: Report from Study
  Country: CA (occurrence: CA)
  Receive Date: 20151029
  Receipt Date: 20151029
  Transmission Date: 20160304
  Serious: Yes (Death)
  Sender: FDA-Public Use
  Company Number: CA-ABBVIE-15P-028-1488761-00

PATIENT
  Sex: Male
  Weight: 70.37 kg

DRUGS (1)
  1. KALETRA [Suspect]
     Active Substance: LOPINAVIR\RITONAVIR
     Indication: ANTIRETROVIRAL THERAPY
     Dosage: 200/50MG 2 TABS
     Route: 048
     Dates: start: 20100101

REACTIONS (1)
  - Death [Fatal]
